FAERS Safety Report 21295075 (Version 2)
Quarter: 2022Q4

REPORT INFORMATION
  Report Type: Spontaneous
  Country: DE (occurrence: DE)
  Receive Date: 20220905
  Receipt Date: 20221010
  Transmission Date: 20230112
  Serious: Yes (Hospitalization)
  Sender: FDA-Public Use
  Company Number: DE-GSKCCFEMEA-Case-01564320_AE-61799

PATIENT

DRUGS (1)
  1. SULTANOL [Suspect]
     Active Substance: ALBUTEROL SULFATE
     Indication: Product used for unknown indication
     Dosage: UNK, 100MCG 1X200D

REACTIONS (4)
  - Foreign body in respiratory tract [Unknown]
  - Pulmonary pain [Unknown]
  - Throat irritation [Unknown]
  - Product complaint [Unknown]

NARRATIVE: CASE EVENT DATE: 20220801
